FAERS Safety Report 8086101-8 (Version None)
Quarter: 2012Q1

REPORT INFORMATION
  Report Type: 
  Country: None (occurrence: None)
  Receive Date: 20120128
  Receipt Date: 20110418
  Transmission Date: 20120608
  Serious: No
  Sender: FDA-Public Use
  Company Number: US-ABBOTT-11P-163-0718927-00

PATIENT
  Sex: Female
  Weight: 90.346 kg

DRUGS (16)
  1. COUMADIN [Suspect]
     Route: 048
     Dates: start: 20110416
  2. SYNTHROID [Concomitant]
     Indication: HYPOTHYROIDISM
     Route: 048
  3. FOLIC ACID [Concomitant]
     Indication: VITAMIN SUPPLEMENTATION
     Route: 048
  4. METHOTREXATE [Concomitant]
     Indication: RHEUMATOID ARTHRITIS
     Route: 048
  5. IRON [Concomitant]
     Indication: MINERAL SUPPLEMENTATION
     Route: 048
  6. COUMADIN [Suspect]
     Indication: DEEP VEIN THROMBOSIS
     Route: 048
     Dates: start: 20000101, end: 20110413
  7. XYZAL [Concomitant]
     Indication: SEASONAL ALLERGY
     Route: 048
  8. ZINC SULFATE [Concomitant]
     Indication: MINERAL SUPPLEMENTATION
     Route: 048
  9. HUMIRA [Suspect]
     Indication: RHEUMATOID ARTHRITIS
     Dosage: NOT REPORTED
     Route: 058
     Dates: start: 20090101
  10. CELEBREX [Concomitant]
     Indication: ARTHRALGIA
     Dosage: QOD, ALTERNATE WITH 2 CAPS QOD
     Route: 048
  11. ASACOL [Concomitant]
     Indication: COLITIS ULCERATIVE
     Route: 048
  12. VITAMIN B-12 [Concomitant]
     Indication: VITAMIN SUPPLEMENTATION
     Dosage: 1/2 TAB WEEKLY
     Route: 048
  13. COUMADIN [Suspect]
     Dosage: 1.5 PER DAY X 2 DAYS
     Route: 048
     Dates: start: 20110413, end: 20110415
  14. ULTRAM [Concomitant]
     Indication: ARTHRALGIA
     Route: 048
  15. ACIPHEX [Concomitant]
     Indication: PROPHYLAXIS AGAINST GASTROINTESTINAL ULCER
     Dosage: 11 IN 1 WEEK
     Route: 048
  16. PREDNISONE TAB [Concomitant]
     Indication: RHEUMATOID ARTHRITIS
     Route: 048

REACTIONS (4)
  - INTERNATIONAL NORMALISED RATIO DECREASED [None]
  - ILL-DEFINED DISORDER [None]
  - PYREXIA [None]
  - HAEMATOMA [None]
